FAERS Safety Report 11014623 (Version 2)
Quarter: 2015Q2

REPORT INFORMATION
  Report Type: Spontaneous
  Country: US (occurrence: US)
  Receive Date: 20150412
  Receipt Date: 20150525
  Transmission Date: 20150821
  Serious: No
  Sender: FDA-Public Use
  Company Number: US-JNJFOC-20130602421

PATIENT
  Sex: Female

DRUGS (3)
  1. ULTRAM [Suspect]
     Active Substance: TRAMADOL HYDROCHLORIDE
     Indication: BONE PAIN
     Dosage: 1 TABLET 4 DAYS AS NEEDED
     Route: 048
     Dates: start: 201109, end: 201304
  2. ULTRAM [Suspect]
     Active Substance: TRAMADOL HYDROCHLORIDE
     Indication: BONE PAIN
     Dosage: 1-4 A DAY, 1/2 TO 1 TAB
     Route: 048
     Dates: start: 201109, end: 201109
  3. SALMETEROL [Concomitant]
     Active Substance: SALMETEROL
     Indication: EMPHYSEMA
     Route: 055
     Dates: start: 2010, end: 2012

REACTIONS (1)
  - Drug hypersensitivity [Unknown]
